FAERS Safety Report 6506679-2 (Version None)
Quarter: 2009Q4

REPORT INFORMATION
  Report Type: 
  Country: None (occurrence: None)
  Receive Date: 20091221
  Receipt Date: 20091208
  Transmission Date: 20100525
  Serious: Yes (Other)
  Sender: FDA-Public Use
  Company Number: US-SANOFI-AVENTIS-2009SA000784

PATIENT
  Sex: Female
  Weight: 91.63 kg

DRUGS (5)
  1. AMBIEN CR [Suspect]
     Indication: INSOMNIA
     Route: 048
     Dates: start: 20090926, end: 20090929
  2. ZOLPIDEM TARTRATE [Suspect]
     Indication: SLEEP DISORDER
     Route: 048
     Dates: start: 20090911, end: 20090923
  3. DOXEPIN HCL [Concomitant]
     Indication: SLEEP DISORDER
     Route: 065
     Dates: start: 19980101, end: 20090915
  4. NEURONTIN [Concomitant]
     Route: 065
     Dates: start: 20090916, end: 20090928
  5. LYRICA [Concomitant]
     Indication: FIBROMYALGIA
     Route: 065
     Dates: start: 20090924, end: 20090929

REACTIONS (19)
  - CHEST PAIN [None]
  - CHOLECYSTITIS ACUTE [None]
  - CONDITION AGGRAVATED [None]
  - DIARRHOEA [None]
  - FLANK PAIN [None]
  - HEADACHE [None]
  - HYPERHIDROSIS [None]
  - HYPOAESTHESIA [None]
  - INFECTION [None]
  - INSOMNIA [None]
  - MUSCLE SPASMS [None]
  - NAUSEA [None]
  - NECK PAIN [None]
  - OROPHARYNGEAL PAIN [None]
  - PAIN [None]
  - PARAESTHESIA [None]
  - RENAL PAIN [None]
  - RHINORRHOEA [None]
  - VOMITING [None]
